FAERS Safety Report 5455863-8 (Version None)
Quarter: 2007Q3

REPORT INFORMATION
  Report Type: 
  Country: None (occurrence: None)
  Receive Date: 20070918
  Receipt Date: 20070228
  Transmission Date: 20080115
  Serious: No
  Sender: FDA-Public Use
  Company Number: US-ASTRAZENECA-2006UW23064

PATIENT
  Age: 16072 Day
  Sex: Female
  Weight: 113.6 kg

DRUGS (3)
  1. SEROQUEL [Suspect]
     Indication: HALLUCINATION, AUDITORY
     Route: 048
     Dates: start: 20000604
  2. CLOZARIL [Concomitant]
  3. RISPERDAL [Concomitant]

REACTIONS (4)
  - BACK PAIN [None]
  - OBESITY [None]
  - PAIN IN EXTREMITY [None]
  - TYPE 1 DIABETES MELLITUS [None]
